FAERS Safety Report 25309852 (Version 1)
Quarter: 2025Q2

REPORT INFORMATION
  Report Type: Report from Study
  Country: US (occurrence: US)
  Receive Date: 20250514
  Receipt Date: 20250514
  Transmission Date: 20250717
  Serious: Yes (Other)
  Sender: ALEXION PHARMACEUTICALS
  Company Number: US-AstraZeneca-CH-00866954A

PATIENT

DRUGS (1)
  1. DAPAGLIFLOZIN [Suspect]
     Active Substance: DAPAGLIFLOZIN
     Route: 065

REACTIONS (14)
  - Type 2 diabetes mellitus [Unknown]
  - Joint instability [Unknown]
  - Arthralgia [Unknown]
  - Depression [Unknown]
  - Intraocular pressure increased [Unknown]
  - Gastrooesophageal reflux disease [Unknown]
  - Hypercholesterolaemia [Unknown]
  - Menopause [Unknown]
  - Osteoporosis [Unknown]
  - Acne [Unknown]
  - Urge incontinence [Unknown]
  - Vitamin D deficiency [Unknown]
  - Cataract [Unknown]
  - Urinary tract infection [Unknown]
